FAERS Safety Report 8717630 (Version 2)
Quarter: 2012Q4

REPORT INFORMATION
  Report Type: Spontaneous
  Country: US (occurrence: None)
  Receive Date: 20120726
  Receipt Date: 20120914
  Transmission Date: 20130627
  Serious: Yes (Hospitalization)
  Sender: FDA-Public Use
  Company Number: PR-AE12-000050

PATIENT
  Sex: Male

DRUGS (1)
  1. SOMINEX [Suspect]
     Indication: INSOMNIA
     Dosage: single use
     Route: 048
     Dates: start: 20120709

REACTIONS (8)
  - Psychotic disorder [None]
  - Somnambulism [None]
  - Paranoia [None]
  - Delusion [None]
  - Hallucinations, mixed [None]
  - Incoherent [None]
  - Panic reaction [None]
  - Amnesia [None]
